FAERS Safety Report 12053956 (Version 2)
Quarter: 2017Q1

REPORT INFORMATION
  Report Type: Spontaneous
  Country: US (occurrence: US)
  Receive Date: 20160209
  Receipt Date: 20170209
  Transmission Date: 20170428
  Serious: No
  Sender: FDA-Public Use
  Company Number: US-SA-2015SA190864

PATIENT
  Age: 77 Year
  Sex: Male
  Weight: 111 kg

DRUGS (2)
  1. ALIROCUMAB PREFILLED PEN [Concomitant]
     Active Substance: ALIROCUMAB
     Indication: BLOOD CHOLESTEROL INCREASED
     Dates: start: 201510
  2. PRALUENT [Suspect]
     Active Substance: ALIROCUMAB
     Indication: BLOOD CHOLESTEROL INCREASED
     Route: 058
     Dates: start: 201510

REACTIONS (4)
  - Pain in extremity [Unknown]
  - Dizziness [Unknown]
  - Gait disturbance [Unknown]
  - Muscle tightness [Unknown]

NARRATIVE: CASE EVENT DATE: 20151115
